FAERS Safety Report 20421973 (Version 1)
Quarter: 2022Q1

REPORT INFORMATION
  Report Type: Spontaneous
  Country: FR (occurrence: FR)
  Receive Date: 20220203
  Receipt Date: 20220203
  Transmission Date: 20220423
  Serious: Yes (Hospitalization)
  Sender: FDA-Public Use
  Company Number: None

PATIENT
  Age: 75 Year
  Sex: Male
  Weight: 106 kg

DRUGS (2)
  1. ATORVASTATIN [Interacting]
     Active Substance: ATORVASTATIN
     Indication: Product used for unknown indication
     Dosage: ATORVASTATINE,  40 MG
     Route: 048
  2. FLUINDIONE [Suspect]
     Active Substance: FLUINDIONE
     Indication: Product used for unknown indication
     Dosage: PREVISCAN 20 MG, COMPRIME SECABLE, SCORED TABLET
     Route: 048

REACTIONS (3)
  - International normalised ratio increased [Recovered/Resolved]
  - Gastrointestinal haemorrhage [Recovered/Resolved]
  - Drug interaction [Unknown]

NARRATIVE: CASE EVENT DATE: 20211105
